FAERS Safety Report 8776903 (Version 2)
Quarter: 2012Q4

REPORT INFORMATION
  Report Type: 
  Country: JP (occurrence: JP)
  Receive Date: 20120911
  Receipt Date: 20121105
  Transmission Date: 20130627
  Serious: Yes (Hospitalization)
  Sender: FDA-Public Use
  Company Number: JP-ABBOTT-12P-087-0977879-00

PATIENT
  Age: 68 Year
  Sex: Female

DRUGS (7)
  1. LIPIDIL [Suspect]
     Indication: HYPERLIPIDAEMIA
     Route: 048
     Dates: start: 20120307, end: 20120414
  2. ATELEC [Concomitant]
     Indication: HYPERTENSION
     Route: 048
     Dates: start: 200704
  3. THYRADIN-S [Concomitant]
     Indication: HYPOTHYROIDISM
     Route: 048
     Dates: start: 20101013
  4. RYTHMODAN [Concomitant]
     Indication: SICK SINUS SYNDROME
     Route: 048
     Dates: start: 200808
  5. HALCION [Concomitant]
     Indication: INSOMNIA
     Route: 048
     Dates: start: 200906
  6. LOXONIN [Concomitant]
     Indication: BACK PAIN
     Route: 048
     Dates: start: 20110617
  7. PURSENNID [Concomitant]
     Indication: CONSTIPATION
     Route: 048
     Dates: start: 201012

REACTIONS (1)
  - Liver disorder [Recovered/Resolved]
